FAERS Safety Report 4597957-5 (Version None)
Quarter: 2005Q1

REPORT INFORMATION
  Report Type: 
  Country: None (occurrence: None)
  Receive Date: 20050301
  Receipt Date: 20050215
  Transmission Date: 20050727
  Serious: Yes (Other)
  Sender: FDA-Public Use
  Company Number: 2005030814

PATIENT
  Age: 50 Year
  Sex: Female
  Weight: 79.3795 kg

DRUGS (8)
  1. BENADRYL [Suspect]
     Indication: SLEEP DISORDER
     Dosage: 2 TABLETS EVERY 4-6 HOURS (6-12 DAILY), ORAL
     Route: 048
     Dates: start: 20040901
  2. HALOPERIDOL [Concomitant]
  3. QUETIAPINE FUMARATE (QUITIAPINE FUMARATE) [Concomitant]
  4. GLIPIZIDE [Concomitant]
  5. ROSIGLITAZONE MALEATE [Concomitant]
  6. LEVOTHYROXINE SODIUM [Concomitant]
  7. ESTROGEN NOS (ESTROGEN NOS) [Concomitant]
  8. EZETIMIBE/SIMVASTATIN (EZETIMIBE, SIMVASTATIN) [Concomitant]

REACTIONS (2)
  - DRUG DEPENDENCE [None]
  - HALLUCINATION, AUDITORY [None]
